FAERS Safety Report 22246070 (Version 1)
Quarter: 2023Q2

REPORT INFORMATION
  Report Type: Spontaneous
  Country: JP (occurrence: JP)
  Receive Date: 20230424
  Receipt Date: 20230424
  Transmission Date: 20230722
  Serious: Yes (Other)
  Sender: FDA-Public Use
  Company Number: JP-HBT LABS-2023HBT00005

PATIENT
  Age: 55 Year
  Sex: Male

DRUGS (10)
  1. PACLITAXEL [Suspect]
     Active Substance: PACLITAXEL
     Indication: Lung cancer metastatic
     Dosage: FIRST CYCLE; 175 MG/M^2
  2. PACLITAXEL [Suspect]
     Active Substance: PACLITAXEL
     Dosage: SECOND CYCLE
  3. CARBOPLATIN [Suspect]
     Active Substance: CARBOPLATIN
     Indication: Lung cancer metastatic
     Dosage: FIRST CYCLE; AUC 5
  4. CARBOPLATIN [Suspect]
     Active Substance: CARBOPLATIN
     Dosage: SECOND CYCLE
  5. NIVOLUMAB [Suspect]
     Active Substance: NIVOLUMAB
     Indication: Lung cancer metastatic
     Dosage: FIRST CYCLE; 360 MG/BODY
  6. NIVOLUMAB [Suspect]
     Active Substance: NIVOLUMAB
     Dosage: SECOND CYCLE
  7. NIVOLUMAB [Suspect]
     Active Substance: NIVOLUMAB
     Dosage: CONTINUATION MAINTENANCE Q3W X 5 CYCLES; Q3 WEEKS WITH ONGOING REGIMEN
  8. IPILIMUMAB [Suspect]
     Active Substance: IPILIMUMAB
     Indication: Lung cancer metastatic
     Dosage: FIRST CYCLE; 1 MG/KG
  9. IPILIMUMAB [Suspect]
     Active Substance: IPILIMUMAB
     Dosage: SECOND CYCLE
  10. IPILIMUMAB [Suspect]
     Active Substance: IPILIMUMAB
     Dosage: CONTINUATION MAINTENANCE Q6W X 5 CYCLES; Q3 WEEKS WITH ONGOING REGIMEN

REACTIONS (1)
  - Tumour pseudoprogression [Recovered/Resolved]
